FAERS Safety Report 7917636-3 (Version None)
Quarter: 2011Q4

REPORT INFORMATION
  Report Type: 
  Country: None (occurrence: None)
  Receive Date: 20111116
  Receipt Date: 20111103
  Transmission Date: 20120403
  Serious: Yes (Other)
  Sender: FDA-Public Use
  Company Number: DE-ELI_LILLY_AND_COMPANY-DE201111000839

PATIENT
  Sex: Female

DRUGS (2)
  1. OLANZAPINE [Suspect]
     Dosage: 210 MG, UNKNOWN
     Route: 030
  2. CITALOPRAM HYDROBROMIDE [Concomitant]

REACTIONS (4)
  - MALAISE [None]
  - SOMNOLENCE [None]
  - AKATHISIA [None]
  - TONGUE DISORDER [None]
